FAERS Safety Report 19604465 (Version 3)
Quarter: 2021Q4

REPORT INFORMATION
  Report Type: Spontaneous
  Country: JP (occurrence: JP)
  Receive Date: 20210724
  Receipt Date: 20211105
  Transmission Date: 20220303
  Serious: Yes (Death, Life-Threatening, Hospitalization, Other)
  Sender: FDA-Public Use
  Company Number: JP-CHUGAI-2021001625AA

PATIENT
  Age: 71 Year
  Sex: Male
  Weight: 55 kg

DRUGS (4)
  1. GAZYVA [Suspect]
     Active Substance: OBINUTUZUMAB
     Indication: Follicular lymphoma
     Route: 041
     Dates: start: 20210413, end: 20210427
  2. GAZYVA [Suspect]
     Active Substance: OBINUTUZUMAB
     Route: 041
     Dates: start: 20210603
  3. BENDAMUSTINE HYDROCHLORIDE [Suspect]
     Active Substance: BENDAMUSTINE HYDROCHLORIDE
     Indication: Product used for unknown indication
     Dosage: UNK
     Route: 041
     Dates: start: 202104
  4. FILGRASTIM [Concomitant]
     Active Substance: FILGRASTIM
     Dosage: 75UG/DAY
     Route: 058
     Dates: start: 20210517, end: 20210519

REACTIONS (5)
  - Acute kidney injury [Recovered/Resolved]
  - Urinary tract infection [Recovered/Resolved]
  - Urinary tract obstruction [Recovering/Resolving]
  - Lymphoma transformation [Unknown]
  - Death [Fatal]

NARRATIVE: CASE EVENT DATE: 20210507
